FAERS Safety Report 9067704 (Version 2)
Quarter: 2013Q3

REPORT INFORMATION
  Report Type: Spontaneous
  Country: US (occurrence: US)
  Receive Date: 20130206
  Receipt Date: 20130722
  Transmission Date: 20140515
  Serious: Yes (Other)
  Sender: FDA-Public Use
  Company Number: US-JNJFOC-20130201241

PATIENT
  Sex: Female

DRUGS (2)
  1. ROGAINE FOR MEN EXTRA STRENGTH [Suspect]
     Route: 061
  2. ROGAINE FOR MEN EXTRA STRENGTH [Suspect]
     Indication: PRODUCT USED FOR UNKNOWN INDICATION
     Dosage: A SMALL SIZE EVERY OTHER DAY
     Route: 061

REACTIONS (7)
  - Product tampering [Unknown]
  - Inappropriate schedule of drug administration [Unknown]
  - Hair colour changes [Recovering/Resolving]
  - Wrong patient received medication [Unknown]
  - Wrong technique in drug usage process [Unknown]
  - Hair texture abnormal [Unknown]
  - Drug ineffective [Unknown]
